FAERS Safety Report 9639339 (Version 1)
Quarter: 2013Q4

REPORT INFORMATION
  Report Type: Spontaneous
  Country: US (occurrence: None)
  Receive Date: 20131021
  Receipt Date: 20131021
  Transmission Date: 20140711
  Serious: Yes (Death)
  Sender: FDA-Public Use
  Company Number: SYM-2013-11658

PATIENT
  Age: 95 Year
  Sex: Female

DRUGS (8)
  1. FLAGYL [Suspect]
     Indication: LUNG DISORDER
     Dosage: ORAL
     Route: 048
     Dates: start: 20130906, end: 20130907
  2. CIFLOX [Suspect]
     Indication: LUNG DISORDER
     Route: 048
     Dates: start: 20130909, end: 20130914
  3. CILASTATIN / IMIPENEM [Suspect]
     Indication: LUNG DISORDER
     Dosage: INTRAVENOUS (NOT OTHERWISE SPECIFIED)
     Route: 042
     Dates: start: 20130907, end: 20130909
  4. CIPROFLOXACIN [Suspect]
     Indication: LUNG DISORDER
     Dosage: INTRVENOUS (NOT OTHERWISE SPECIFIED)
     Route: 042
     Dates: start: 20130907, end: 20130909
  5. CEFTRIAXONE [Suspect]
     Indication: LUNG DISORDER
     Dosage: PARENTERAL
     Route: 051
     Dates: start: 20130902, end: 20130906
  6. PYOSTACINE (PRISTINAMYCIN) (PRISTINAMYCIN) [Concomitant]
  7. METHOTREXATE (METHOTREXATE (METHOTREXATE) [Concomitant]
  8. DERMOVAL (CLOBETASOL PROPIONATE) (CLOBETASOL PROPIONATE) [Concomitant]

REACTIONS (1)
  - Dermatitis bullous [None]
